FAERS Safety Report 7541008-7 (Version None)
Quarter: 2011Q2

REPORT INFORMATION
  Report Type: 
  Country: None (occurrence: None)
  Receive Date: 20110610
  Receipt Date: 20110606
  Transmission Date: 20111010
  Serious: Yes (Other)
  Sender: FDA-Public Use
  Company Number: US-ELI_LILLY_AND_COMPANY-US200910005202

PATIENT
  Sex: Male
  Weight: 147.85 kg

DRUGS (11)
  1. NEURONTIN [Concomitant]
     Dosage: 600 MG, TID
  2. METOPROLOL [Concomitant]
  3. NABUMETONE [Concomitant]
     Indication: ARTHRITIS
  4. BYETTA [Suspect]
     Indication: DIABETES MELLITUS
     Dosage: UNK, UNKNOWN
     Route: 065
     Dates: start: 20071101, end: 20081001
  5. ACTOS [Concomitant]
     Indication: DIABETES MELLITUS
     Dosage: 5 UG, BID
     Dates: end: 20080104
  6. METFORMIN HCL [Concomitant]
     Dosage: 1000 MG, BID
  7. LISINOPRIL [Concomitant]
  8. HYDROCHLOROTHIAZIDE [Concomitant]
  9. ZOCOR [Concomitant]
     Indication: HYPERLIPIDAEMIA
  10. GLUCOPHAGE [Concomitant]
  11. GLYBURIDE [Concomitant]
     Dosage: 10 MG, BID

REACTIONS (1)
  - PANCREATITIS ACUTE [None]
